FAERS Safety Report 9369477 (Version 9)
Quarter: 2015Q2

REPORT INFORMATION
  Report Type: Spontaneous
  Country: US (occurrence: US)
  Receive Date: 20130626
  Receipt Date: 20150415
  Transmission Date: 20150821
  Serious: Yes (Other)
  Sender: FDA-Public Use
  Company Number: US-PFIZER INC-2013188465

PATIENT
  Age: 60 Year
  Sex: Male

DRUGS (4)
  1. SUTENT [Suspect]
     Active Substance: SUNITINIB MALATE
     Indication: RENAL CANCER
     Dosage: 50 MG, UNK (STRENGTH 12.5 MG)
     Route: 048
     Dates: start: 20121129, end: 20130103
  2. SUTENT [Suspect]
     Active Substance: SUNITINIB MALATE
     Dosage: 37.5 MG, CYCLIC DAILY 4 WEEKS ON/ 2 WEEKS OFF
     Route: 048
     Dates: start: 20121129, end: 20131115
  3. SUTENT [Suspect]
     Active Substance: SUNITINIB MALATE
     Dosage: 37.5 MG, CYCLIC (37.5 MG DAILY, 4 WEEKS ON 2 WEEKS OFF)
     Route: 048
     Dates: start: 20121130
  4. SUTENT [Suspect]
     Active Substance: SUNITINIB MALATE
     Dosage: 37.5 MG, CYCLIC 4 WEEKS ON/2 WEEKS OFF
     Route: 048
     Dates: start: 20130105

REACTIONS (10)
  - Back pain [Unknown]
  - Oral herpes [Not Recovered/Not Resolved]
  - Nausea [Unknown]
  - Malaise [Unknown]
  - Blister [Recovered/Resolved]
  - Fatigue [Unknown]
  - Fluid retention [Unknown]
  - Diarrhoea [Unknown]
  - Face oedema [Not Recovered/Not Resolved]
  - Drug intolerance [Unknown]

NARRATIVE: CASE EVENT DATE: 20131115
